FAERS Safety Report 6771785-4 (Version None)
Quarter: 2010Q2

REPORT INFORMATION
  Report Type: 
  Country: None (occurrence: None)
  Receive Date: 20100616
  Receipt Date: 20100217
  Transmission Date: 20101027
  Serious: No
  Sender: FDA-Public Use
  Company Number: US-ASTRAZENECA-2010SE06944

PATIENT
  Age: 16323 Day
  Sex: Female

DRUGS (1)
  1. ATACAND [Suspect]
     Indication: HYPERTENSION
     Route: 048
     Dates: start: 20100127

REACTIONS (3)
  - BLOOD PRESSURE SYSTOLIC INCREASED [None]
  - ERUCTATION [None]
  - REGURGITATION [None]
